FAERS Safety Report 9983784 (Version 3)
Quarter: 2014Q2

REPORT INFORMATION
  Report Type: Spontaneous
  Country: US (occurrence: US)
  Receive Date: 20140307
  Receipt Date: 20140430
  Transmission Date: 20141212
  Serious: Yes (Other)
  Sender: FDA-Public Use
  Company Number: US-GLAXOSMITHKLINE-A1063805A

PATIENT
  Age: 55 Year
  Sex: Male
  Weight: 81.4 kg

DRUGS (3)
  1. WELLBUTRIN SR [Suspect]
     Indication: PRODUCT USED FOR UNKNOWN INDICATION
     Dosage: 150MG UNKNOWN
     Route: 065
     Dates: start: 20060210
  2. FLONASE [Suspect]
     Indication: PRODUCT USED FOR UNKNOWN INDICATION
     Dosage: 50MCG UNKNOWN
     Route: 045
     Dates: start: 20050913
  3. DILANTIN [Concomitant]
     Indication: CONVULSION
     Dosage: 100MG UNKNOWN
     Route: 048
     Dates: start: 1997

REACTIONS (1)
  - Epilepsy [Not Recovered/Not Resolved]
